FAERS Safety Report 9227110 (Version 1)
Quarter: 2013Q1

REPORT INFORMATION
  Report Type: Spontaneous
  Country: US (occurrence: None)
  Receive Date: 20120927
  Receipt Date: 20120927
  Transmission Date: 20140127
  Serious: No
  Sender: FDA-Public Use
  Company Number: 2012-00420

PATIENT
  Sex: Male

DRUGS (3)
  1. VALPROATE [Suspect]
     Indication: CONVULSION
     Dosage: 500MG AT LAST MENSTRUAL PERIOD, TRANSPLACENTAL
     Route: 064
  2. CARBAMAZEPINE [Suspect]
     Indication: CONVULSION
     Dosage: 400 MG AT 11 WEEK OF PREGNANCY, TRANSPLACENTAL
     Route: 064
  3. PHENYTOIN [Suspect]
     Indication: CONVULSION
     Dosage: 200MG AT 10 WK OF PREGNANCY, TRANSPLACENTAL
     Route: 064

REACTIONS (1)
  - Renal aplasia [None]
